FAERS Safety Report 7313957-6 (Version None)
Quarter: 2011Q1

REPORT INFORMATION
  Report Type: 
  Country: None (occurrence: None)
  Receive Date: 20110225
  Receipt Date: 20110214
  Transmission Date: 20110831
  Serious: Yes (Hospitalization)
  Sender: FDA-Public Use
  Company Number: ES-SANOFI-AVENTIS-2011SA009921

PATIENT
  Age: 67 Year
  Sex: Female

DRUGS (5)
  1. SINTROM [Concomitant]
  2. FLECAINIDE ACETATE [Concomitant]
  3. ALMAX [Concomitant]
  4. BISOPROLOL FUMARATE [Concomitant]
  5. MULTAQ [Suspect]
     Indication: ATRIAL FIBRILLATION
     Route: 048
     Dates: start: 20110112

REACTIONS (2)
  - ARRHYTHMIA [None]
  - OFF LABEL USE [None]
